FAERS Safety Report 15556341 (Version 1)
Quarter: 2018Q4

REPORT INFORMATION
  Report Type: Spontaneous
  Country: FR (occurrence: FR)
  Receive Date: 20181026
  Receipt Date: 20181026
  Transmission Date: 20190205
  Serious: Yes (Other)
  Sender: FDA-Public Use
  Company Number: FR-PROVELL PHARMACEUTICALS-2058118

PATIENT
  Age: 35 Year
  Sex: Female
  Weight: 100 kg

DRUGS (4)
  1. EUTHYROX [Suspect]
     Active Substance: LEVOTHYROXINE SODIUM
     Indication: POST PROCEDURAL HYPOTHYROIDISM
  2. EUTHYROX [Suspect]
     Active Substance: LEVOTHYROXINE SODIUM
     Dates: start: 201707
  3. EUTHYROX [Suspect]
     Active Substance: LEVOTHYROXINE SODIUM
     Dates: start: 2018
  4. THYBON [Suspect]
     Active Substance: LIOTHYRONINE
     Dates: start: 2018, end: 201810

REACTIONS (37)
  - Fear [None]
  - Acne [None]
  - Headache [None]
  - Feeling abnormal [None]
  - Malaise [None]
  - Skin laxity [None]
  - Lipoma [None]
  - Fear of crowded places [None]
  - Ingrown hair [None]
  - Menorrhagia [None]
  - Decreased interest [None]
  - Vitamin D decreased [None]
  - Arthralgia [Not Recovered/Not Resolved]
  - Acrophobia [None]
  - Tri-iodothyronine uptake abnormal [None]
  - Apathy [None]
  - Serum ferritin decreased [Recovered/Resolved]
  - Anxiety [None]
  - Fatigue [None]
  - Blood calcium decreased [None]
  - Liver function test abnormal [None]
  - Mental impairment [None]
  - Food craving [None]
  - Weight increased [None]
  - Eating disorder [None]
  - Myalgia [Not Recovered/Not Resolved]
  - Social avoidant behaviour [None]
  - Alopecia [None]
  - Daydreaming [None]
  - White blood cell count decreased [None]
  - Dysgeusia [None]
  - Immune thrombocytopenic purpura [Not Recovered/Not Resolved]
  - Blood thyroid stimulating hormone increased [Recovered/Resolved]
  - Crying [Not Recovered/Not Resolved]
  - Skin odour abnormal [None]
  - Depression [None]
  - Asthenia [None]

NARRATIVE: CASE EVENT DATE: 2018
